FAERS Safety Report 19233619 (Version 2)
Quarter: 2021Q2

REPORT INFORMATION
  Report Type: Report from Study
  Country: FR (occurrence: FR)
  Receive Date: 20210507
  Receipt Date: 20210615
  Transmission Date: 20210717
  Serious: Yes (Hospitalization, Other)
  Sender: FDA-Public Use
  Company Number: FR-TAKEDA-2021TUS028353

PATIENT
  Sex: Female

DRUGS (1)
  1. VEDOLIZUMAB [Suspect]
     Active Substance: VEDOLIZUMAB
     Indication: INFLAMMATORY BOWEL DISEASE
     Dosage: UNK
     Route: 042
     Dates: start: 20161202, end: 20170803

REACTIONS (1)
  - Portal vein thrombosis [Not Recovered/Not Resolved]

NARRATIVE: CASE EVENT DATE: 20190205
